FAERS Safety Report 17414525 (Version 1)
Quarter: 2020Q1

REPORT INFORMATION
  Report Type: Spontaneous
  Country: CA (occurrence: CA)
  Receive Date: 20200213
  Receipt Date: 20200213
  Transmission Date: 20200409
  Serious: Yes (Other)
  Sender: FDA-Public Use
  Company Number: CA-PFIZER INC-2020060612

PATIENT

DRUGS (1)
  1. ADVIL LIQUI-GELS [Suspect]
     Active Substance: IBUPROFEN

REACTIONS (5)
  - Vomiting [Unknown]
  - Haematemesis [Unknown]
  - Product use complaint [Unknown]
  - Product shape issue [Unknown]
  - Foreign body in respiratory tract [Unknown]
